FAERS Safety Report 10077275 (Version 1)
Quarter: 2014Q2

REPORT INFORMATION
  Report Type: Report from Study
  Country: JP (occurrence: JP)
  Receive Date: 20140414
  Receipt Date: 20140414
  Transmission Date: 20141212
  Serious: Yes (Other)
  Sender: FDA-Public Use
  Company Number: JP-MYLANLABS-2014S1007893

PATIENT
  Sex: Male

DRUGS (13)
  1. CYCLOPHOSPHAMIDE [Suspect]
     Indication: HAEMANGIOMA-THROMBOCYTOPENIA SYNDROME
     Dosage: 40 MG/KG FOR 2 MONTHLY CYCLES
     Route: 065
  2. PIRARUBICIN [Suspect]
     Indication: HAEMANGIOMA-THROMBOCYTOPENIA SYNDROME
     Dosage: 1.3 MG/KG FOR 2 MONTHLY CYCLES
     Route: 065
  3. CARBOPLATIN [Suspect]
     Indication: HAEMANGIOMA-THROMBOCYTOPENIA SYNDROME
     Dosage: 15 MG/KG FOR 2 MONTHLY CYCLES
     Route: 065
  4. CARBOPLATIN [Suspect]
     Indication: OFF LABEL USE
     Dosage: 15 MG/KG FOR 2 MONTHLY CYCLES
     Route: 065
  5. VINCRISTINE [Suspect]
     Indication: HAEMANGIOMA-THROMBOCYTOPENIA SYNDROME
     Dosage: 0.05 MG/KG FOR 3 MONTHLY CYCLES
     Route: 065
  6. DACTINOMYCIN [Suspect]
     Indication: HAEMANGIOMA-THROMBOCYTOPENIA SYNDROME
     Dosage: 0.015 MG/KG/DAY, 4 DAY, FOR 3 MONTHLY CYCLES; THEN REGIMEN SWITCHED TO 3 WEEKLY
     Route: 065
  7. DACTINOMYCIN [Suspect]
     Indication: HAEMANGIOMA-THROMBOCYTOPENIA SYNDROME
     Dosage: 8 CYCLES, 0.015 MG/KG/DAY, 4 DAY, EVERY 3 WEEKS
     Route: 065
  8. PREDNISOLONE [Suspect]
     Indication: HAEMANGIOMA-THROMBOCYTOPENIA SYNDROME
     Route: 042
  9. PREDNISOLONE [Suspect]
     Indication: OFF LABEL USE
     Route: 042
  10. PREDNISOLONE [Suspect]
     Indication: HAEMANGIOMA-THROMBOCYTOPENIA SYNDROME
     Route: 048
  11. PREDNISOLONE [Suspect]
     Indication: OFF LABEL USE
     Route: 048
  12. PROPRANOLOL [Concomitant]
     Indication: HAEMANGIOMA-THROMBOCYTOPENIA SYNDROME
     Route: 065
  13. INTERFERON [Concomitant]
     Indication: HAEMANGIOMA-THROMBOCYTOPENIA SYNDROME
     Route: 065

REACTIONS (5)
  - Neutropenia [Unknown]
  - Growth retardation [Unknown]
  - Osteoporosis [Unknown]
  - Constipation [Unknown]
  - Decreased appetite [Unknown]
